FAERS Safety Report 21784195 (Version 1)
Quarter: 2022Q4

REPORT INFORMATION
  Report Type: Spontaneous
  Country: US (occurrence: US)
  Receive Date: 20221227
  Receipt Date: 20221227
  Transmission Date: 20230113
  Serious: Yes (Other)
  Sender: FDA-Public Use
  Company Number: US-TAKEDA-2022TUS100388

PATIENT
  Age: 73 Year
  Sex: Female

DRUGS (4)
  1. COLCHICINE [Interacting]
     Active Substance: COLCHICINE
     Indication: Pericarditis
     Dosage: 0.6 MILLIGRAM, BID
     Route: 065
  2. COLCHICINE [Interacting]
     Active Substance: COLCHICINE
     Dosage: 0.3 MILLIGRAM, BID
     Route: 065
  3. ERYTHROMYCIN [Interacting]
     Active Substance: ERYTHROMYCIN
     Indication: Cataract operation
     Dosage: UNK
     Route: 065
  4. CYCLOSPORINE [Interacting]
     Active Substance: CYCLOSPORINE
     Indication: Cataract operation
     Dosage: UNK
     Route: 065

REACTIONS (4)
  - Toxicity to various agents [Unknown]
  - Off label use [Unknown]
  - Drug interaction [Unknown]
  - Diarrhoea [Recovered/Resolved]
